FAERS Safety Report 4577598-6 (Version None)
Quarter: 2005Q1

REPORT INFORMATION
  Report Type: 
  Country: None (occurrence: None)
  Receive Date: 20050210
  Receipt Date: 20041010
  Transmission Date: 20050727
  Serious: Yes (Hospitalization)
  Sender: FDA-Public Use
  Company Number: DE-MERCK-0410DEU00302

PATIENT
  Age: 50 Year
  Sex: Female

DRUGS (5)
  1. VIOXX [Suspect]
     Indication: OSTEOARTHRITIS
     Route: 048
     Dates: end: 20021001
  2. VIOXX [Suspect]
     Route: 048
     Dates: start: 20020101, end: 20041005
  3. VIOXX [Suspect]
     Indication: SOFT TISSUE DISORDER
     Route: 048
     Dates: end: 20021001
  4. VIOXX [Suspect]
     Route: 048
     Dates: start: 20020101, end: 20041005
  5. FENTANYL [Concomitant]
     Route: 061
     Dates: start: 20020901

REACTIONS (8)
  - CERVICOBRACHIAL SYNDROME [None]
  - CIRCULATORY COLLAPSE [None]
  - DIZZINESS [None]
  - MIGRAINE [None]
  - SYNCOPE [None]
  - TACHYCARDIA [None]
  - VENTRICULAR EXTRASYSTOLES [None]
  - VOMITING [None]
